FAERS Safety Report 6893666-8 (Version None)
Quarter: 2010Q3

REPORT INFORMATION
  Report Type: 
  Country: None (occurrence: None)
  Receive Date: 20100731
  Receipt Date: 20091127
  Transmission Date: 20110219
  Serious: No
  Sender: FDA-Public Use
  Company Number: US-PFIZER INC-2009255858

PATIENT
  Sex: Female

DRUGS (2)
  1. GABAPENTIN [Suspect]
     Indication: HERPES ZOSTER
     Dosage: 100 MG, UNK
     Route: 048
     Dates: start: 20090501
  2. LIDODERM [Concomitant]
     Dosage: UNK

REACTIONS (2)
  - DIZZINESS [None]
  - DRUG INEFFECTIVE [None]
